FAERS Safety Report 24036168 (Version 2)
Quarter: 2024Q3

REPORT INFORMATION
  Report Type: Report from Study
  Country: US (occurrence: US)
  Receive Date: 20240701
  Receipt Date: 20240729
  Transmission Date: 20241016
  Serious: Yes (Hospitalization, Other)
  Sender: APELLIS PHARMACEUTICALS
  Company Number: US-APELLIS-2024-APL-0000352

PATIENT

DRUGS (9)
  1. PEGCETACOPLAN [Suspect]
     Active Substance: PEGCETACOPLAN
     Indication: Paroxysmal nocturnal haemoglobinuria
     Dosage: 1080 MG, TWICE WEEKLY
     Route: 058
     Dates: start: 20220506
  2. PEGCETACOPLAN [Suspect]
     Active Substance: PEGCETACOPLAN
     Dosage: 1080 MG EVERY 3 DAYS
     Route: 058
  3. MYCOPHENOLATE MOFETIL [Concomitant]
     Active Substance: MYCOPHENOLATE MOFETIL
     Indication: Product used for unknown indication
  4. PROMACTA [Concomitant]
     Active Substance: ELTROMBOPAG OLAMINE
     Indication: Product used for unknown indication
  5. CARVEDILOL [Concomitant]
     Active Substance: CARVEDILOL
     Indication: Product used for unknown indication
  6. VITAMIN D [Concomitant]
     Active Substance: VITAMIN D NOS
     Indication: Product used for unknown indication
  7. VALSARTAN [Concomitant]
     Active Substance: VALSARTAN
     Indication: Product used for unknown indication
  8. AMLODIPINE [Concomitant]
     Active Substance: AMLODIPINE BESYLATE
     Indication: Product used for unknown indication
  9. FOLIC ACID [Concomitant]
     Active Substance: FOLIC ACID
     Indication: Product used for unknown indication

REACTIONS (4)
  - Pneumonia [Unknown]
  - Influenza [Unknown]
  - Haemoglobin decreased [Unknown]
  - Off label use [Unknown]
